FAERS Safety Report 7384737-0 (Version None)
Quarter: 2011Q1

REPORT INFORMATION
  Report Type: 
  Country: None (occurrence: None)
  Receive Date: 20110330
  Receipt Date: 20110318
  Transmission Date: 20110831
  Serious: Yes (Other)
  Sender: FDA-Public Use
  Company Number: PHHY2011AR22877

PATIENT
  Sex: Male

DRUGS (1)
  1. DIOVAN [Suspect]
     Indication: HYPERTENSION
     Dosage: 0.5 MG, DAILY
     Dates: start: 20100801, end: 20100901

REACTIONS (6)
  - TREMOR [None]
  - DIZZINESS [None]
  - FEELING ABNORMAL [None]
  - ASTHENIA [None]
  - NASOPHARYNGITIS [None]
  - DISCOMFORT [None]
